FAERS Safety Report 8936683 (Version 6)
Quarter: 2013Q1

REPORT INFORMATION
  Report Type: Spontaneous
  Country: JP (occurrence: JP)
  Receive Date: 20121130
  Receipt Date: 20130311
  Transmission Date: 20140127
  Serious: Yes (Other)
  Sender: FDA-Public Use
  Company Number: JP-PFIZER INC-2012296498

PATIENT
  Age: 55 Year
  Sex: Male
  Weight: 55.5 kg

DRUGS (4)
  1. DIFLUCAN [Suspect]
     Indication: MENINGITIS CRYPTOCOCCAL
     Dosage: 800 MG, 1X/DAY
     Route: 048
     Dates: start: 20121003, end: 20121011
  2. DIFLUCAN [Suspect]
     Dosage: 800 MG, 1X/DAY
     Route: 048
     Dates: start: 20121026, end: 20121114
  3. DIFLUCAN [Suspect]
     Dosage: 400 MG, 1X/DAY
     Route: 048
     Dates: start: 20121115, end: 20121212
  4. AMBISOME [Concomitant]
     Indication: MENINGITIS CRYPTOCOCCAL
     Dosage: 200 MG, 1X/DAY
     Route: 041
     Dates: start: 20121012, end: 20121025

REACTIONS (2)
  - Adrenal insufficiency [Recovered/Resolved]
  - Renal impairment [Recovered/Resolved]
